FAERS Safety Report 8289981-6 (Version None)
Quarter: 2012Q2

REPORT INFORMATION
  Report Type: 
  Country: None (occurrence: None)
  Receive Date: 20120417
  Receipt Date: 20120411
  Transmission Date: 20120825
  Serious: Yes (Death, Other)
  Sender: FDA-Public Use
  Company Number: US-CELGENEUS-163-21880-12033582

PATIENT
  Sex: Female

DRUGS (10)
  1. ALBUTEROL SULFATE [Concomitant]
     Route: 065
  2. COLACE [Concomitant]
     Route: 065
  3. ADVAIR HFA [Concomitant]
     Route: 065
  4. ARICEPT [Concomitant]
     Route: 065
  5. CARDIZEM LA [Concomitant]
     Route: 065
  6. REVLIMID [Suspect]
     Dosage: 10 MILLIGRAM
     Route: 048
     Dates: start: 20110630
  7. PREDNISONE TAB [Concomitant]
     Route: 065
  8. ALLOPURINOL [Concomitant]
     Route: 065
  9. ARIMIDEX [Concomitant]
     Route: 065
  10. CYMBALTA [Concomitant]
     Route: 065

REACTIONS (2)
  - THROMBOSIS [None]
  - DEATH [None]
